FAERS Safety Report 6908532-9 (Version None)
Quarter: 2010Q3

REPORT INFORMATION
  Report Type: 
  Country: None (occurrence: None)
  Receive Date: 20100805
  Receipt Date: 20100728
  Transmission Date: 20110219
  Serious: Yes (Other)
  Sender: FDA-Public Use
  Company Number: US-SANOFI-AVENTIS-2010SA045482

PATIENT
  Sex: Female

DRUGS (3)
  1. MULTAQ [Suspect]
     Route: 048
     Dates: start: 20100708
  2. COUMADIN [Suspect]
     Route: 048
  3. COUMADIN [Suspect]
     Route: 048
     Dates: start: 20100708

REACTIONS (1)
  - INTERNATIONAL NORMALISED RATIO INCREASED [None]
